FAERS Safety Report 16709876 (Version 9)
Quarter: 2024Q4

REPORT INFORMATION
  Report Type: Spontaneous
  Country: US (occurrence: US)
  Receive Date: 20190816
  Receipt Date: 20241014
  Transmission Date: 20250115
  Serious: Yes (Other)
  Sender: PFIZER
  Company Number: US-PFIZER INC-2019346371

PATIENT
  Age: 80 Year
  Sex: Female
  Weight: 88.9 kg

DRUGS (3)
  1. XELJANZ [Suspect]
     Active Substance: TOFACITINIB CITRATE
     Indication: Rheumatoid arthritis
     Dosage: 5 MG, 2X/DAY
     Route: 048
  2. XELJANZ [Suspect]
     Active Substance: TOFACITINIB CITRATE
     Indication: Osteoarthritis
  3. BUPRENORPHINE [Concomitant]
     Active Substance: BUPRENORPHINE
     Dosage: 5 MG

REACTIONS (8)
  - Cataract [Unknown]
  - Drug dependence [Unknown]
  - Diabetes mellitus [Unknown]
  - Cellulitis [Unknown]
  - Cardiac disorder [Unknown]
  - Pain [Recovering/Resolving]
  - Rash macular [Unknown]
  - Peripheral swelling [Unknown]
